FAERS Safety Report 5889560-1 (Version None)
Quarter: 2008Q3

REPORT INFORMATION
  Report Type: 
  Country: None (occurrence: None)
  Receive Date: 20080919
  Receipt Date: 20080916
  Transmission Date: 20090109
  Serious: Yes (Other)
  Sender: FDA-Public Use
  Company Number: A0747750A

PATIENT
  Age: 85 Year
  Sex: Female

DRUGS (5)
  1. VALTREX [Suspect]
     Dosage: 1500MG PER DAY
     Route: 048
     Dates: start: 20080903, end: 20080914
  2. MORPHINE [Suspect]
     Route: 042
     Dates: start: 20080911, end: 20080913
  3. PERCOCET [Suspect]
     Route: 048
     Dates: start: 20080902, end: 20080910
  4. KEPPRA [Concomitant]
  5. SYNTHROID [Concomitant]

REACTIONS (9)
  - AGGRESSION [None]
  - CONFUSIONAL STATE [None]
  - DRUG INEFFECTIVE [None]
  - FATIGUE [None]
  - HALLUCINATION [None]
  - HOSTILITY [None]
  - OVERDOSE [None]
  - PARANOIA [None]
  - SUSPICIOUSNESS [None]
